FAERS Safety Report 7301121-6 (Version None)
Quarter: 2011Q1

REPORT INFORMATION
  Report Type: 
  Country: None (occurrence: None)
  Receive Date: 20110218
  Receipt Date: 20110211
  Transmission Date: 20110831
  Serious: Yes (Hospitalization)
  Sender: FDA-Public Use
  Company Number: US-BRISTOL-MYERS SQUIBB COMPANY-15400112

PATIENT
  Age: 70 Year
  Sex: Male
  Weight: 89 kg

DRUGS (15)
  1. NEUPOGEN [Concomitant]
     Route: 058
     Dates: end: 20101112
  2. FLUOROURACIL [Suspect]
     Indication: HEAD AND NECK CANCER
     Dosage: MOST RECENT INF ON08NOV10 18OCT TO 08NOV2010(21D)
     Route: 042
     Dates: start: 20101018
  3. ALLOPURINOL [Concomitant]
     Route: 065
  4. OXYCODONE HCL [Concomitant]
     Indication: PAIN
     Dosage: EVERY 6 HRS
     Route: 048
  5. ZOFRAN [Concomitant]
     Dosage: BID
     Route: 065
  6. CARAFATE [Concomitant]
     Route: 048
  7. GRANISETRON HCL [Concomitant]
     Route: 062
     Dates: end: 20101113
  8. PHENERGAN [Concomitant]
     Indication: NAUSEA
     Dosage: 1 DF = 12.5-25 MG EVERY 4 HR,AS NEEDED
     Route: 065
  9. METOPROLOL [Concomitant]
     Indication: HYPERTENSION
     Route: 048
  10. CISPLATIN [Suspect]
     Indication: HEAD AND NECK CANCER
     Dosage: MOST RECENT DOSE ON 08NOV10 18OCT10 TO 08NOV2010 (21D)
     Route: 042
     Dates: start: 20101018
  11. TEMAZEPAM [Concomitant]
     Dosage: AT BED TIME
     Route: 048
  12. NEXIUM [Concomitant]
     Route: 048
  13. CETUXIMAB [Suspect]
     Indication: HEAD AND NECK CANCER
     Dosage: 857MG=18OCT-15NOV2010(28DAYS), 5TH INF  535MG: UNK-22NOV2010
     Route: 042
     Dates: start: 20101018
  14. CLINDAMYCIN [Concomitant]
     Indication: RASH
     Dosage: STRENGTH=1%
     Route: 061
  15. EMEND [Concomitant]
     Dosage: DAY1:125 MG, DAY2:80 MG, DAY3:80 MG
     Route: 048
     Dates: end: 20101110

REACTIONS (6)
  - NAUSEA [None]
  - DEHYDRATION [None]
  - DYSPHAGIA [None]
  - VOMITING [None]
  - MUCOSAL INFLAMMATION [None]
  - DECREASED APPETITE [None]
